FAERS Safety Report 16192368 (Version 1)
Quarter: 2019Q2

REPORT INFORMATION
  Report Type: Spontaneous
  Country: ES (occurrence: ES)
  Receive Date: 20190412
  Receipt Date: 20190412
  Transmission Date: 20190711
  Serious: Yes (Other)
  Sender: FDA-Public Use
  Company Number: ES-009507513-1904ESP004698

PATIENT
  Sex: Male
  Weight: 20 kg

DRUGS (2)
  1. SINGULAIR 5 MG COMPRIMIDOS MASTICABLES [Suspect]
     Active Substance: MONTELUKAST SODIUM
     Indication: ASTHMA
     Dosage: 1 TABLET EVERY 24 HOURS IN LONG PERIODS (OCTOBERSPRING)
     Route: 048
     Dates: start: 20170301, end: 20190228
  2. AERIUS (DESLORATADINE) [Concomitant]
     Active Substance: DESLORATADINE
     Indication: HYPERSENSITIVITY
     Dosage: 5 CC/ DAY IN PERIODS OF ENVIRONMENTAL ALLERGY
     Route: 048
     Dates: start: 20160301

REACTIONS (1)
  - Alopecia areata [Recovering/Resolving]

NARRATIVE: CASE EVENT DATE: 20170703
